FAERS Safety Report 22083925 (Version 1)
Quarter: 2023Q1

REPORT INFORMATION
  Report Type: Spontaneous
  Country: BR (occurrence: None)
  Receive Date: 20230310
  Receipt Date: 20230310
  Transmission Date: 20230417
  Serious: Yes (Other)
  Sender: FDA-Public Use
  Company Number: BR-Merck Healthcare KGaA-9387266

PATIENT
  Age: 63 Year
  Sex: Female

DRUGS (2)
  1. EUTHYROX [Suspect]
     Active Substance: LEVOTHYROXINE SODIUM
     Indication: Post procedural hypothyroidism
     Dosage: 50 TABLETS. IN THE MORNING ON AN EMPTY STOMACH, WAITS 30 MINUTES BEFORE THE MEAL.
     Route: 048
     Dates: start: 201212
  2. EUTHYROX [Suspect]
     Active Substance: LEVOTHYROXINE SODIUM
     Dosage: 50 TABLETS?IN THE MORNING ON AN EMPTY STOMACH, WAITS 30 MINUTES BEFORE THE MEAL.
     Route: 048
     Dates: end: 20230228

REACTIONS (3)
  - Vitamin D deficiency [Recovered/Resolved]
  - Asthma [Not Recovered/Not Resolved]
  - Hypertonic bladder [Not Recovered/Not Resolved]

NARRATIVE: CASE EVENT DATE: 20131101
